FAERS Safety Report 5071837-3 (Version None)
Quarter: 2006Q3

REPORT INFORMATION
  Report Type: 
  Country: None (occurrence: None)
  Receive Date: 20060801
  Receipt Date: 20060728
  Transmission Date: 20061208
  Serious: Yes (Hospitalization)
  Sender: FDA-Public Use
  Company Number: 200610758BYL

PATIENT
  Age: 36 Year
  Sex: Female
  Weight: 47 kg

DRUGS (11)
  1. AVELOX [Suspect]
     Indication: MYCOPLASMA INFECTION
     Dosage: 400 MG QD ORAL
     Route: 048
     Dates: start: 20060510, end: 20060512
  2. AVELOX [Suspect]
     Indication: TONSILLITIS
     Dosage: 400 MG QD ORAL
     Route: 048
     Dates: start: 20060510, end: 20060512
  3. KLARICID [Concomitant]
  4. COCARL [Concomitant]
  5. MUCOSTA [Concomitant]
  6. NEUTAZE [Concomitant]
  7. MUCOSOLVAN [Concomitant]
  8. BROCIN [Concomitant]
  9. HUSTEN ACC [Concomitant]
  10. LOBU [Concomitant]
  11. GASTER [Concomitant]

REACTIONS (1)
  - OCULOMUCOCUTANEOUS SYNDROME [None]
